FAERS Safety Report 9594948 (Version 1)
Quarter: 2013Q4

REPORT INFORMATION
  Report Type: Spontaneous
  Country: US (occurrence: US)
  Receive Date: 20131004
  Receipt Date: 20131004
  Transmission Date: 20140711
  Serious: Yes (Death)
  Sender: FDA-Public Use
  Company Number: US-JNJFOC-20131001683

PATIENT
  Sex: Female
  Weight: 104.33 kg

DRUGS (4)
  1. LEVOFLOXACIN [Suspect]
     Indication: URINARY TRACT INFECTION
     Route: 048
  2. CELEXA [Concomitant]
     Indication: DEPRESSION
     Route: 048
  3. ARICEPT [Concomitant]
     Indication: MEMORY IMPAIRMENT
     Route: 065
  4. METOPROLOL [Concomitant]
     Route: 065

REACTIONS (1)
  - Death [Fatal]
